FAERS Safety Report 5399129-3 (Version None)
Quarter: 2007Q3

REPORT INFORMATION
  Report Type: 
  Country: None (occurrence: None)
  Receive Date: 20070727
  Receipt Date: 20070418
  Transmission Date: 20080115
  Serious: No
  Sender: FDA-Public Use
  Company Number: A0647528A

PATIENT
  Age: 38 Year
  Sex: Female

DRUGS (1)
  1. TAGAMET HB 200 [Suspect]

REACTIONS (3)
  - MALAISE [None]
  - PHARMACEUTICAL PRODUCT COMPLAINT [None]
  - VIRAL INFECTION [None]
